FAERS Safety Report 15089205 (Version 1)
Quarter: 2018Q2

REPORT INFORMATION
  Report Type: Spontaneous
  Country: GR (occurrence: GR)
  Receive Date: 20180629
  Receipt Date: 20180629
  Transmission Date: 20180711
  Serious: Yes (Other)
  Sender: FDA-Public Use
  Company Number: GR-009507513-1804GRC000200

PATIENT
  Age: 64 Year
  Sex: Female

DRUGS (3)
  1. JANUMET [Suspect]
     Active Substance: METFORMIN HYDROCHLORIDE\SITAGLIPTIN PHOSPHATE
     Indication: TYPE 2 DIABETES MELLITUS
     Dosage: 2 TABLETS PER DAY, (50+850 MG PER TABLET)
     Route: 048
     Dates: start: 201802, end: 2018
  2. SINTROM [Interacting]
     Active Substance: ACENOCOUMAROL
     Indication: ANTICOAGULANT THERAPY
  3. DIAMICRON [Interacting]
     Active Substance: GLICLAZIDE
     Indication: DIABETES MELLITUS

REACTIONS (6)
  - Diabetes mellitus inadequate control [Not Recovered/Not Resolved]
  - Drug interaction [Recovered/Resolved]
  - Somnolence [Recovered/Resolved]
  - Burning sensation [Recovered/Resolved]
  - Drug ineffective [Not Recovered/Not Resolved]
  - Back pain [Recovered/Resolved]

NARRATIVE: CASE EVENT DATE: 2018
